FAERS Safety Report 14363414 (Version 3)
Quarter: 2018Q1

REPORT INFORMATION
  Report Type: Spontaneous
  Country: GB (occurrence: GB)
  Receive Date: 20180108
  Receipt Date: 20180321
  Transmission Date: 20180509
  Serious: Yes (Death)
  Sender: FDA-Public Use
  Company Number: GB-MYLANLABS-2018M1001898

PATIENT
  Age: 40 Year
  Sex: Male

DRUGS (3)
  1. THYROXIN [Concomitant]
     Active Substance: LEVOTHYROXINE
     Indication: HYPOTHYROIDISM
     Dosage: 300 ?G, TID
  2. REBOXETINE [Concomitant]
     Active Substance: REBOXETINE
     Indication: DEPRESSION
     Dosage: 4 MG, BID
     Route: 048
     Dates: start: 1998
  3. CLOZARIL [Suspect]
     Active Substance: CLOZAPINE
     Indication: SCHIZOPHRENIA
     Dosage: UNK
     Dates: start: 19981104

REACTIONS (2)
  - Extrapyramidal disorder [Unknown]
  - Death [Fatal]

NARRATIVE: CASE EVENT DATE: 20171213
